FAERS Safety Report 14009837 (Version 1)
Quarter: 2017Q3

REPORT INFORMATION
  Report Type: Spontaneous
  Country: NL (occurrence: NL)
  Receive Date: 20170925
  Receipt Date: 20170925
  Transmission Date: 20171128
  Serious: Yes (Other)
  Sender: FDA-Public Use
  Company Number: NL-ELI_LILLY_AND_COMPANY-NL201709005154

PATIENT
  Sex: Female

DRUGS (1)
  1. ZYPADHERA [Suspect]
     Active Substance: OLANZAPINE PAMOATE
     Indication: BIPOLAR DISORDER
     Dosage: 210 MG, EVERY THREE WEEKS
     Route: 030

REACTIONS (6)
  - Tracheal oedema [Unknown]
  - Tongue disorder [Unknown]
  - Oesophageal oedema [Unknown]
  - Mania [Unknown]
  - Swollen tongue [Unknown]
  - Blood pressure increased [Unknown]
